FAERS Safety Report 11883278 (Version 1)
Quarter: 2015Q4

REPORT INFORMATION
  Report Type: Spontaneous
  Country: GB (occurrence: GB)
  Receive Date: 20151231
  Receipt Date: 20151231
  Transmission Date: 20160305
  Serious: Yes (Death, Congenital Anomaly, Other)
  Sender: FDA-Public Use
  Company Number: GB-GILEAD-2015-0190119

PATIENT
  Age: 0 Year

DRUGS (3)
  1. FOLIC ACID. [Concomitant]
     Active Substance: FOLIC ACID
     Indication: PRODUCT USED FOR UNKNOWN INDICATION
     Dosage: DO NOT KNOW WHEN FOLIC ACID STARTED.
     Route: 064
  2. TRUVADA [Suspect]
     Active Substance: EMTRICITABINE\TENOFOVIR DISOPROXIL FUMARATE
     Indication: ASYMPTOMATIC HIV INFECTION
     Route: 064
     Dates: start: 20101007
  3. NEVIRAPINE. [Suspect]
     Active Substance: NEVIRAPINE
     Indication: ASYMPTOMATIC HIV INFECTION
     Route: 064
     Dates: start: 20101007

REACTIONS (1)
  - Congenital genitourinary abnormality [Fatal]

NARRATIVE: CASE EVENT DATE: 20150807
